FAERS Safety Report 25255384 (Version 1)
Quarter: 2025Q2

REPORT INFORMATION
  Report Type: Spontaneous
  Country: US (occurrence: None)
  Receive Date: 20250429
  Receipt Date: 20250429
  Transmission Date: 20250717
  Serious: Yes (Other)
  Sender: FDA-CTU
  Company Number: None

PATIENT
  Age: 81 Year
  Sex: Female

DRUGS (1)
  1. BOTOX [Suspect]
     Active Substance: ONABOTULINUMTOXINA
     Dates: start: 20241120, end: 20250429

REACTIONS (4)
  - Swelling face [None]
  - Injection related reaction [None]
  - Reduced facial expression [None]
  - Compulsive lip biting [None]

NARRATIVE: CASE EVENT DATE: 20250429
